FAERS Safety Report 8374750-9 (Version None)
Quarter: 2012Q2

REPORT INFORMATION
  Report Type: 
  Country: None (occurrence: None)
  Receive Date: 20120521
  Receipt Date: 20120508
  Transmission Date: 20120825
  Serious: Yes (Hospitalization)
  Sender: FDA-Public Use
  Company Number: US-JNJFOC-20120407955

PATIENT
  Sex: Female

DRUGS (13)
  1. VITAMIN B-12 [Concomitant]
     Route: 065
  2. COLACE [Concomitant]
     Route: 065
  3. ASACOL [Concomitant]
     Indication: CROHN'S DISEASE
     Route: 065
  4. MULTIPLE VITAMINS [Concomitant]
     Route: 065
  5. IRON [Concomitant]
     Route: 065
  6. REMICADE [Suspect]
     Indication: CROHN'S DISEASE
     Route: 042
     Dates: start: 20120220
  7. VALIUM [Concomitant]
     Indication: ANXIETY
     Route: 065
  8. FOLIC ACID [Concomitant]
     Route: 065
  9. OMEPRAZOLE [Concomitant]
     Route: 065
  10. COUMADIN [Concomitant]
     Indication: CEREBROVASCULAR ACCIDENT
     Route: 065
  11. METAMUCIL-2 [Concomitant]
     Route: 065
  12. DEXILANT [Concomitant]
     Route: 065
  13. REMICADE [Suspect]
     Route: 042
     Dates: start: 20050101

REACTIONS (3)
  - CARDIAC FAILURE CONGESTIVE [None]
  - LATENT TUBERCULOSIS [None]
  - PNEUMONIA [None]
